FAERS Safety Report 5910811-9 (Version None)
Quarter: 2008Q4

REPORT INFORMATION
  Report Type: 
  Country: None (occurrence: None)
  Receive Date: 20081007
  Receipt Date: 20080520
  Transmission Date: 20090506
  Serious: No
  Sender: FDA-Public Use
  Company Number: US-ASTRAZENECA-2008UW10276

PATIENT
  Age: 52 Year
  Sex: Female

DRUGS (1)
  1. ARIMIDEX [Suspect]
     Indication: BREAST CANCER
     Route: 048
     Dates: start: 20060101

REACTIONS (5)
  - ARTHRALGIA [None]
  - BONE DENSITY DECREASED [None]
  - JOINT STIFFNESS [None]
  - MENOPAUSE [None]
  - WEIGHT INCREASED [None]
